FAERS Safety Report 10723203 (Version 1)
Quarter: 2015Q1

REPORT INFORMATION
  Report Type: Spontaneous
  Country: US (occurrence: US)
  Receive Date: 20150120
  Receipt Date: 20150120
  Transmission Date: 20150721
  Serious: No
  Sender: FDA-Public Use
  Company Number: US-PFIZER INC-2015018934

PATIENT
  Age: 59 Year
  Sex: Female
  Weight: 136 kg

DRUGS (7)
  1. LYRICA [Suspect]
     Active Substance: PREGABALIN
     Indication: RHEUMATOID ARTHRITIS
  2. METFORMIN [Concomitant]
     Active Substance: METFORMIN HYDROCHLORIDE
     Dosage: 1000 MG, 2X/DAY
  3. PREDNISONE. [Concomitant]
     Active Substance: PREDNISONE
     Dosage: 5 MG, DAILY
  4. LYRICA [Suspect]
     Active Substance: PREGABALIN
     Indication: FIBROMYALGIA
     Dosage: 1 DF, 2X/DAY
     Dates: start: 201311
  5. LYRICA [Suspect]
     Active Substance: PREGABALIN
     Indication: DIABETIC NEUROPATHY
  6. METHOTREXATE [Concomitant]
     Active Substance: METHOTREXATE
     Dosage: 8 DF, WEEKLY
  7. CLONIDINE. [Concomitant]
     Active Substance: CLONIDINE
     Dosage: UNK, 2X/DAY

REACTIONS (1)
  - Gait disturbance [Unknown]
